FAERS Safety Report 20582849 (Version 1)
Quarter: 2022Q1

REPORT INFORMATION
  Report Type: Spontaneous
  Country: US (occurrence: None)
  Receive Date: 20220311
  Receipt Date: 20220311
  Transmission Date: 20220423
  Serious: Yes (Hospitalization)
  Sender: FDA-Public Use
  Company Number: 2022A105354

PATIENT
  Sex: Female

DRUGS (4)
  1. SEROQUEL [Suspect]
     Active Substance: QUETIAPINE FUMARATE
     Route: 048
     Dates: start: 20220211
  2. ZYPREXA [Suspect]
     Active Substance: OLANZAPINE
     Route: 065
     Dates: start: 20220211
  3. FLEXERIL [Suspect]
     Active Substance: CYCLOBENZAPRINE HYDROCHLORIDE
     Route: 065
     Dates: start: 20220203, end: 20220216
  4. BACLOFEN [Suspect]
     Active Substance: BACLOFEN
     Route: 065

REACTIONS (5)
  - Psychotic disorder [Unknown]
  - Chest pain [Unknown]
  - Weight increased [Unknown]
  - Tremor [Unknown]
  - Dry mouth [Unknown]

NARRATIVE: CASE EVENT DATE: 20220211
